FAERS Safety Report 6885808-5 (Version None)
Quarter: 2010Q3

REPORT INFORMATION
  Report Type: 
  Country: None (occurrence: None)
  Receive Date: 20100729
  Receipt Date: 20080219
  Transmission Date: 20110219
  Serious: Yes (Other)
  Sender: FDA-Public Use
  Company Number: US-PFIZER INC-2008013453

PATIENT
  Sex: Female
  Weight: 84.09 kg

DRUGS (4)
  1. CELEBREX [Suspect]
     Indication: RHEUMATOID ARTHRITIS
     Dates: start: 20080101, end: 20080101
  2. NIFEDIPINE [Concomitant]
  3. MONTELUKAST SODIUM [Concomitant]
  4. PREVACID [Concomitant]

REACTIONS (4)
  - DRUG INEFFECTIVE [None]
  - OEDEMA PERIPHERAL [None]
  - SKIN DISCOLOURATION [None]
  - SKIN EXFOLIATION [None]
